FAERS Safety Report 11903053 (Version 1)
Quarter: 2016Q1

REPORT INFORMATION
  Report Type: Report from Study
  Country: US (occurrence: US)
  Receive Date: 20160108
  Receipt Date: 20160108
  Transmission Date: 20160526
  Serious: No
  Sender: FDA-Public Use
  Company Number: US-ABBVIE-15P-163-1520548-00

PATIENT
  Age: 60 Year
  Sex: Female

DRUGS (3)
  1. MELATONIN [Concomitant]
     Active Substance: MELATONIN
     Indication: PRODUCT USED FOR UNKNOWN INDICATION
  2. PARSLEY. [Concomitant]
     Active Substance: PARSLEY
     Indication: PRODUCT USED FOR UNKNOWN INDICATION
  3. VIEKIRA PAK [Suspect]
     Active Substance: DASABUVIR\OMBITASVIR\PARITAPREVIR\RITONAVIR
     Indication: HEPATITIS C
     Dosage: 2 PINK TABLETS AND 1 BEIGE TABLET IN AM AND 1 BEIGE TABLET IN PM
     Route: 048
     Dates: start: 20151111

REACTIONS (7)
  - Headache [Unknown]
  - Fatigue [Unknown]
  - Hypotension [Unknown]
  - Heart rate increased [Unknown]
  - Depressed mood [Unknown]
  - Dyspnoea [Unknown]
  - Anaemia [Unknown]

NARRATIVE: CASE EVENT DATE: 201511
